FAERS Safety Report 15615982 (Version 15)
Quarter: 2023Q2

REPORT INFORMATION
  Report Type: Other
  Country: CN (occurrence: None)
  Receive Date: 20181114
  Receipt Date: 20230413
  Transmission Date: 20230722
  Serious: Yes (Hospitalization, Other)
  Sender: FDA-Public Use
  Company Number: CN-ROCHE-2201123

PATIENT
  Age: 67 Year
  Sex: Male
  Weight: 62 kg

DRUGS (6)
  1. AVASTIN [Suspect]
     Active Substance: BEVACIZUMAB
     Indication: Colon cancer metastatic
     Dosage: FORM OF ADMIN:100 MG
     Route: 041
     Dates: start: 20170630, end: 20221215
  2. AVASTIN [Suspect]
     Active Substance: BEVACIZUMAB
     Dosage: FORM OF ADMIN:100 MG
     Route: 041
     Dates: start: 2018, end: 201810
  3. AVASTIN [Suspect]
     Active Substance: BEVACIZUMAB
     Dosage: FORM OF ADMIN:100 MG
     Route: 041
     Dates: end: 20191031
  4. AVASTIN [Suspect]
     Active Substance: BEVACIZUMAB
     Dosage: FORM OF ADMIN:100 MG
     Route: 041
  5. XELODA [Suspect]
     Active Substance: CAPECITABINE
     Indication: Colon cancer metastatic
     Route: 048
     Dates: start: 2018, end: 201810
  6. OXALIPLATIN [Concomitant]
     Active Substance: OXALIPLATIN
     Indication: Colon cancer metastatic
     Dates: start: 2018

REACTIONS (23)
  - Pneumonia fungal [Recovered/Resolved]
  - Cholecystitis [Recovering/Resolving]
  - COVID-19 pneumonia [Unknown]
  - Myelosuppression [Recovering/Resolving]
  - Myelosuppression [Recovering/Resolving]
  - Movement disorder [Unknown]
  - Blood blister [Unknown]
  - Mental disorder [Unknown]
  - Decreased appetite [Unknown]
  - Frequent bowel movements [Unknown]
  - Fatigue [Unknown]
  - Feeling abnormal [Unknown]
  - Asthenia [Unknown]
  - Diarrhoea [Unknown]
  - Frequent bowel movements [Unknown]
  - Treatment noncompliance [Recovered/Resolved]
  - Diarrhoea [Unknown]
  - Feeling abnormal [Recovered/Resolved]
  - Decreased appetite [Recovered/Resolved]
  - Asthenia [Recovered/Resolved]
  - Diarrhoea [Recovering/Resolving]
  - Nasopharyngitis [Unknown]
  - COVID-19 [Unknown]

NARRATIVE: CASE EVENT DATE: 20190822
